FAERS Safety Report 22115123 (Version 1)
Quarter: 2023Q1

REPORT INFORMATION
  Report Type: Spontaneous
  Country: US (occurrence: US)
  Receive Date: 20230320
  Receipt Date: 20230320
  Transmission Date: 20230417
  Serious: No
  Sender: FDA-Public Use
  Company Number: US-PFIZER INC-202300114452

PATIENT
  Age: 41 Year
  Sex: Female
  Weight: 56.25 kg

DRUGS (2)
  1. PAXLOVID [Suspect]
     Active Substance: NIRMATRELVIR\RITONAVIR
     Indication: COVID-19
     Dosage: [PF-07321332 300 MG]/[RITONAVIR 100 MG]; 2X/DAY
     Dates: start: 20230313
  2. AMOXICILLIN [Concomitant]
     Active Substance: AMOXICILLIN
     Indication: Pharyngitis streptococcal
     Dosage: UNK
     Dates: end: 20230313

REACTIONS (3)
  - Musculoskeletal chest pain [Recovering/Resolving]
  - Myalgia [Recovering/Resolving]
  - Discomfort [Not Recovered/Not Resolved]

NARRATIVE: CASE EVENT DATE: 20230315
